FAERS Safety Report 19238528 (Version 1)
Quarter: 2021Q2

REPORT INFORMATION
  Report Type: Spontaneous
  Country: AR (occurrence: AR)
  Receive Date: 20210510
  Receipt Date: 20210510
  Transmission Date: 20210717
  Serious: Yes (Other)
  Sender: FDA-Public Use
  Company Number: NVSC2021AR098919

PATIENT
  Age: 78 Year
  Sex: Male

DRUGS (1)
  1. LETROZOLE. [Suspect]
     Active Substance: LETROZOLE
     Indication: BREAST CANCER MALE
     Dosage: UNK
     Route: 065

REACTIONS (4)
  - Cardiotoxicity [Unknown]
  - Gene mutation [Unknown]
  - Metastases to lymph nodes [Unknown]
  - Metastases to bone [Unknown]
